FAERS Safety Report 9023884 (Version 1)
Quarter: 2013Q1

REPORT INFORMATION
  Report Type: Spontaneous
  Country: US (occurrence: US)
  Receive Date: 20130121
  Receipt Date: 20130121
  Transmission Date: 20140127
  Serious: Yes (Hospitalization)
  Sender: FDA-Public Use
  Company Number: US-ELI_LILLY_AND_COMPANY-US201301003686

PATIENT
  Age: 76 None
  Sex: Male

DRUGS (8)
  1. FORTEO [Suspect]
     Indication: OSTEOPOROSIS
     Dosage: 20 UG, QD
     Dates: start: 20120404
  2. SINEMET LP 50/200 [Concomitant]
     Dosage: UNK
  3. LEVODOPA [Concomitant]
     Dosage: UNK
  4. ATENOLOL [Concomitant]
     Dosage: UNK
  5. FINASTERIDE [Concomitant]
     Dosage: UNK
  6. SENOKOT [Concomitant]
     Dosage: UNK
  7. FLOMAX [Concomitant]
     Dosage: UNK
  8. B12 [Concomitant]
     Dosage: UNK

REACTIONS (3)
  - Pneumonia [Unknown]
  - Influenza [Unknown]
  - Muscular weakness [Unknown]
